FAERS Safety Report 8451650-7 (Version None)
Quarter: 2012Q2

REPORT INFORMATION
  Report Type: 
  Country: None (occurrence: None)
  Receive Date: 20120620
  Receipt Date: 20120312
  Transmission Date: 20120825
  Serious: No
  Sender: FDA-Public Use
  Company Number: US-VERTEX PHARMACEUTICALS INC.-AE-2012-003519

PATIENT
  Sex: Female
  Weight: 79.904 kg

DRUGS (3)
  1. COPEGUS [Concomitant]
     Indication: HEPATITIS C
     Dates: start: 20120113
  2. INCIVEK [Suspect]
     Indication: HEPATITIS C
     Route: 048
     Dates: start: 20120113
  3. PEGASYS [Concomitant]
     Indication: HEPATITIS C
     Route: 058
     Dates: start: 20120113

REACTIONS (7)
  - DYSPEPSIA [None]
  - PROCTALGIA [None]
  - FATIGUE [None]
  - ASTHENIA [None]
  - ABDOMINAL PAIN UPPER [None]
  - MUCOSA VESICLE [None]
  - STOMATITIS [None]
